FAERS Safety Report 8908573 (Version 1)
Quarter: 2012Q4

REPORT INFORMATION
  Report Type: 
  Country: DE (occurrence: DE)
  Receive Date: 20121114
  Receipt Date: 20121114
  Transmission Date: 20130627
  Serious: Yes (Hospitalization)
  Sender: FDA-Public Use
  Company Number: DE-ASTRAZENECA-2012SE84479

PATIENT
  Age: 13514 Day
  Sex: Female

DRUGS (5)
  1. SEROQUEL [Suspect]
     Route: 048
     Dates: start: 20110801, end: 20120709
  2. SEROQUEL [Suspect]
     Dosage: 400 - 600 mg/day
     Route: 048
     Dates: start: 20120710
  3. TOFRANIL [Suspect]
     Route: 048
     Dates: start: 20110810, end: 20120709
  4. TOFRANIL [Suspect]
     Dosage: 50 - 100 mg/day
     Route: 048
     Dates: start: 20120710
  5. L-THYROXIN [Concomitant]
     Route: 048
     Dates: start: 2010

REACTIONS (3)
  - Food craving [Unknown]
  - Binge eating [Unknown]
  - Weight increased [Recovering/Resolving]
